FAERS Safety Report 10579992 (Version 1)
Quarter: 2014Q4

REPORT INFORMATION
  Report Type: Spontaneous
  Country: US (occurrence: US)
  Receive Date: 20141112
  Receipt Date: 20141112
  Transmission Date: 20150529
  Serious: No
  Sender: FDA-Public Use
  Company Number: US-TARO-2014P1003050

PATIENT
  Sex: Male
  Weight: 108.86 kg

DRUGS (14)
  1. ASPIRIN. [Concomitant]
     Active Substance: ASPIRIN
     Dates: start: 2001
  2. OMEPRAZOLE. [Concomitant]
     Active Substance: OMEPRAZOLE
     Dates: start: 2009
  3. SERTRALINE [Concomitant]
     Active Substance: SERTRALINE HYDROCHLORIDE
     Dates: start: 2009
  4. TYLENOL [Concomitant]
     Active Substance: ACETAMINOPHEN
     Dates: start: 2013
  5. LISINOPRIL. [Concomitant]
     Active Substance: LISINOPRIL
     Dates: start: 2001
  6. EZETIMIBE. [Concomitant]
     Active Substance: EZETIMIBE
     Dates: start: 2009
  7. GABAPENTIN. [Concomitant]
     Active Substance: GABAPENTIN
     Dates: start: 2013
  8. CARBAMAZEPINE ORAL SUSPENSION USP 100MG/5ML [Suspect]
     Active Substance: CARBAMAZEPINE
     Indication: ANXIETY
     Route: 048
     Dates: start: 2010
  9. CLONIDINE. [Concomitant]
     Active Substance: CLONIDINE
     Dates: start: 2012
  10. VITAMIN D [Concomitant]
     Active Substance: CHOLECALCIFEROL
     Dates: start: 2011
  11. IRON SULFATE [Concomitant]
     Active Substance: FERROUS SULFATE ANHYDROUS
     Dosage: BID
     Dates: start: 2013
  12. OXYCODONE [Concomitant]
     Active Substance: OXYCODONE
     Dates: start: 2013
  13. CLONAZEPAM. [Concomitant]
     Active Substance: CLONAZEPAM
     Dates: start: 2011
  14. MIRTAZAPINE. [Concomitant]
     Active Substance: MIRTAZAPINE
     Dates: start: 2011

REACTIONS (3)
  - Off label use [Not Recovered/Not Resolved]
  - Oesophageal spasm [Not Recovered/Not Resolved]
  - Product quality issue [Not Recovered/Not Resolved]
